FAERS Safety Report 21625789 (Version 1)
Quarter: 2022Q4

REPORT INFORMATION
  Report Type: Report from Study
  Country: US (occurrence: US)
  Receive Date: 20221122
  Receipt Date: 20221122
  Transmission Date: 20230113
  Serious: Yes (Death)
  Sender: FDA-Public Use
  Company Number: US-CATALYST PHARMACEUTICALS, INC-US-CATA-22-02680

PATIENT
  Age: 76 Year
  Sex: Female
  Weight: 59 kg

DRUGS (3)
  1. FIRDAPSE [Suspect]
     Active Substance: AMIFAMPRIDINE PHOSPHATE
     Indication: Myasthenic syndrome
     Dosage: 1 DOSAGE FORM, TID, AFTER 3 DAYS INCREASED DAILY BY 1.5 TBL, TID, FOR 3 DAYS
     Route: 048
     Dates: start: 20200214, end: 2020
  2. FIRDAPSE [Suspect]
     Active Substance: AMIFAMPRIDINE PHOSPHATE
     Dosage: 2 DOSAGE FORM, TID
     Route: 048
     Dates: start: 2020, end: 202006
  3. FIRDAPSE [Suspect]
     Active Substance: AMIFAMPRIDINE PHOSPHATE
     Dosage: 2 DOSAGE FORM, QID
     Route: 048
     Dates: start: 202006

REACTIONS (1)
  - Death [Fatal]

NARRATIVE: CASE EVENT DATE: 20221105
